FAERS Safety Report 6376661-7 (Version None)
Quarter: 2009Q3

REPORT INFORMATION
  Report Type: 
  Country: None (occurrence: None)
  Receive Date: 20090925
  Receipt Date: 20090313
  Transmission Date: 20100115
  Serious: Yes (Other)
  Sender: FDA-Public Use
  Company Number: PHEH2009US11470

PATIENT
  Sex: Female

DRUGS (1)
  1. ZOMETA [Suspect]
     Indication: METASTASES TO BONE

REACTIONS (5)
  - MASTICATION DISORDER [None]
  - OSTEONECROSIS [None]
  - RESORPTION BONE INCREASED [None]
  - SELF ESTEEM DECREASED [None]
  - TOOTH LOSS [None]
